FAERS Safety Report 16396467 (Version 1)
Quarter: 2019Q2

REPORT INFORMATION
  Report Type: Report from Study
  Country: None (occurrence: DE)
  Receive Date: 20190605
  Receipt Date: 20190605
  Transmission Date: 20190711
  Serious: Yes (Hospitalization)
  Sender: FDA-Public Use
  Company Number: DE-ABBVIE-19K-062-2805949-00

PATIENT
  Sex: Male
  Weight: 150 kg

DRUGS (2)
  1. HUMIRA [Suspect]
     Active Substance: ADALIMUMAB
     Indication: PSORIATIC ARTHROPATHY
     Route: 058
     Dates: start: 2006
  2. METEX [Concomitant]
     Indication: PSORIASIS
     Route: 058

REACTIONS (3)
  - Cough [Not Recovered/Not Resolved]
  - Muscle spasms [Not Recovered/Not Resolved]
  - Intermittent claudication [Not Recovered/Not Resolved]

NARRATIVE: CASE EVENT DATE: 2009
